FAERS Safety Report 17868004 (Version 2)
Quarter: 2020Q4

REPORT INFORMATION
  Report Type: Report from Study
  Country: AU (occurrence: AU)
  Receive Date: 20200605
  Receipt Date: 20201130
  Transmission Date: 20210113
  Serious: Yes (Hospitalization)
  Sender: FDA-Public Use
  Company Number: AU-TOLMAR, INC.-2019AU009070

PATIENT

DRUGS (1)
  1. ELIGARD [Suspect]
     Active Substance: LEUPROLIDE ACETATE
     Indication: PROSTATE CANCER
     Dosage: 22.5 MG, Q 3 MONTH
     Route: 058
     Dates: start: 20190527

REACTIONS (6)
  - Malaise [Unknown]
  - Cyst [Unknown]
  - Injection site discomfort [Unknown]
  - Supraventricular tachycardia [Unknown]
  - Injection site haemorrhage [Unknown]
  - Nausea [Unknown]
